FAERS Safety Report 4600607-2 (Version None)
Quarter: 2005Q1

REPORT INFORMATION
  Report Type: 
  Country: None (occurrence: None)
  Receive Date: 20050304
  Receipt Date: 20050218
  Transmission Date: 20050727
  Serious: No
  Sender: FDA-Public Use
  Company Number: 02100-JPN-05-0084

PATIENT
  Age: 70 Year
  Sex: Male

DRUGS (2)
  1. CILOSTAZOL [Suspect]
     Indication: CEREBRAL INFARCTION
     Dosage: 200 MG; ORAL
     Route: 048
     Dates: start: 20050216
  2. FAROPENEM SODIUM [Concomitant]

REACTIONS (1)
  - HALLUCINATION [None]
